FAERS Safety Report 8087890-9 (Version None)
Quarter: 2012Q1

REPORT INFORMATION
  Report Type: 
  Country: None (occurrence: None)
  Receive Date: 20120128
  Receipt Date: 20110407
  Transmission Date: 20120608
  Serious: No
  Sender: FDA-Public Use
  Company Number: US-ABBOTT-11P-163-0718086-00

PATIENT
  Sex: Male
  Weight: 55.842 kg

DRUGS (4)
  1. HUMIRA [Suspect]
     Indication: CROHN'S DISEASE
     Dates: start: 20110404
  2. METHOTREXATE [Concomitant]
     Indication: CROHN'S DISEASE
     Route: 058
  3. TRAMADOL HCL [Concomitant]
     Indication: PAIN
  4. IRON IV INFUSION [Concomitant]
     Indication: PRODUCT USED FOR UNKNOWN INDICATION
     Route: 042

REACTIONS (1)
  - RASH MACULO-PAPULAR [None]
